FAERS Safety Report 4864067-9 (Version None)
Quarter: 2005Q4

REPORT INFORMATION
  Report Type: 
  Country: None (occurrence: None)
  Receive Date: 20051219
  Receipt Date: 20051104
  Transmission Date: 20060501
  Serious: No
  Sender: FDA-Public Use
  Company Number: B01200502172

PATIENT
  Age: 65 Year
  Sex: Male

DRUGS (1)
  1. CLOPIDOGREL BISULFATE [Suspect]
     Dosage: 75 MG QD - ORAL
     Route: 048
     Dates: start: 20030122, end: 20050828

REACTIONS (12)
  - ANAEMIA [None]
  - CONFUSIONAL STATE [None]
  - DEPRESSION [None]
  - DUODENAL ULCER [None]
  - FACE INJURY [None]
  - FALL [None]
  - GASTRITIS [None]
  - INCONTINENCE [None]
  - LIMB INJURY [None]
  - METASTASES TO LUNG [None]
  - SYNCOPE [None]
  - UPPER GASTROINTESTINAL HAEMORRHAGE [None]
